FAERS Safety Report 8878793 (Version 1)
Quarter: 2012Q4

REPORT INFORMATION
  Report Type: 
  Country: MX (occurrence: MX)
  Receive Date: 20121026
  Receipt Date: 20121026
  Transmission Date: 20130627
  Serious: Yes (Hospitalization, Other)
  Sender: FDA-Public Use
  Company Number: PHHY2012MX095776

PATIENT
  Age: 10 Year
  Sex: Male

DRUGS (1)
  1. RITALIN [Suspect]
     Indication: ATTENTION DEFICIT/HYPERACTIVITY DISORDER
     Dosage: 20 mg, QD
     Dates: start: 20120715, end: 20121001

REACTIONS (6)
  - Gastrointestinal disorder [Recovered/Resolved]
  - Gastritis [Recovered/Resolved]
  - Erosive oesophagitis [Recovered/Resolved]
  - Epstein-Barr virus infection [Recovered/Resolved]
  - Daydreaming [Recovered/Resolved]
  - Distractibility [Recovered/Resolved]
